FAERS Safety Report 25054713 (Version 5)
Quarter: 2025Q4

REPORT INFORMATION
  Report Type: Report from Study
  Country: KR (occurrence: KR)
  Receive Date: 20250308
  Receipt Date: 20251204
  Transmission Date: 20260118
  Serious: Yes (Death, Hospitalization, Other)
  Sender: ABBVIE
  Company Number: KR-ABBVIE-6158801

PATIENT
  Age: 53 Year
  Sex: Male
  Weight: 61 kg

DRUGS (24)
  1. VENCLEXTA [Suspect]
     Active Substance: VENETOCLAX
     Indication: Acute myeloid leukaemia
     Route: 048
     Dates: start: 20250219, end: 20250219
  2. VENCLEXTA [Suspect]
     Active Substance: VENETOCLAX
     Indication: Acute myeloid leukaemia
     Route: 048
     Dates: start: 20250220, end: 20250220
  3. VENCLEXTA [Suspect]
     Active Substance: VENETOCLAX
     Indication: Acute myeloid leukaemia
     Route: 048
     Dates: start: 20250221, end: 20250226
  4. Fresofol mct [Concomitant]
     Indication: Product used for unknown indication
     Dosage: 2% INJ
     Route: 042
     Dates: start: 20250228, end: 20250312
  5. JARDIANCE [Concomitant]
     Active Substance: EMPAGLIFLOZIN
     Indication: Diabetes mellitus
     Dosage: 10 MG
     Route: 048
     Dates: start: 20250203, end: 20250228
  6. ETOMIDATE [Concomitant]
     Active Substance: ETOMIDATE
     Indication: Premedication
     Route: 042
     Dates: start: 20250228, end: 20250228
  7. ENTRESTO [Concomitant]
     Active Substance: SACUBITRIL\VALSARTAN
     Indication: Cardiac failure congestive
     Dosage: 50 MG
     Route: 048
     Dates: start: 20250124, end: 20250228
  8. EZETIMIBE\PITAVASTATIN CALCIUM [Concomitant]
     Active Substance: EZETIMIBE\PITAVASTATIN CALCIUM
     Indication: Coronary artery disease
     Dosage: TAB 2/10MG
     Route: 048
     Dates: start: 20250218, end: 20250228
  9. Daihan lidocaine hcl [Concomitant]
     Indication: Premedication
     Dosage: 2% INJECTION
     Dates: start: 20250228, end: 20250228
  10. JANUVIA [Concomitant]
     Active Substance: SITAGLIPTIN PHOSPHATE
     Indication: Diabetes mellitus
     Dosage: 50 MG
     Route: 048
     Dates: start: 20250221, end: 20250227
  11. DACOGEN [Concomitant]
     Active Substance: DECITABINE
     Indication: Acute myeloid leukaemia
     Dosage: INJ, EVERY 4WEEKS FOR 5DAYS?ROUTE OF ADMINISTRATION: IRRIGATION
     Route: 042
     Dates: start: 20250219, end: 20250223
  12. Solondo [Concomitant]
     Indication: Chemotherapy side effect prophylaxis
     Route: 048
     Dates: start: 20250218, end: 20250228
  13. PORTALAC [Concomitant]
     Active Substance: LACTULOSE
     Indication: Constipation
     Dosage: SYR 15ML
     Route: 048
     Dates: start: 20250217, end: 20250228
  14. METFORMIN HYDROCHLORIDE [Concomitant]
     Active Substance: METFORMIN HYDROCHLORIDE
     Indication: Diabetes mellitus
     Dosage: 500 MG
     Route: 048
     Dates: start: 20250221, end: 20250227
  15. Dong a gaster [Concomitant]
     Indication: Prophylaxis against gastrointestinal ulcer
     Dosage: 20MG VIAL
     Route: 042
     Dates: start: 20250301, end: 20250317
  16. Vecaron [Concomitant]
     Indication: Premedication
     Route: 042
     Dates: start: 20250228, end: 20250228
  17. ISOSORBIDE MONONITRATE [Concomitant]
     Active Substance: ISOSORBIDE MONONITRATE
     Indication: Cardiac failure congestive
     Dosage: ER 60 MG
     Route: 048
     Dates: start: 20250218, end: 20250226
  18. ALDACTONE [Concomitant]
     Active Substance: SPIRONOLACTONE
     Indication: Cardiac failure congestive
     Dosage: 25 MG
     Route: 048
     Dates: start: 20250204, end: 20250224
  19. ATIVAN [Concomitant]
     Active Substance: LORAZEPAM
     Indication: Insomnia
     Dosage: 1 MG
     Route: 048
     Dates: start: 20250221, end: 20250227
  20. ATIVAN [Concomitant]
     Active Substance: LORAZEPAM
     Indication: Insomnia
     Dosage: 2MG/0.5ML
     Route: 042
     Dates: start: 20250311, end: 20250317
  21. Pine inj [Concomitant]
     Indication: Thrombosis prophylaxis
     Dosage: 5000IU/ML
     Route: 042
     Dates: start: 20250228, end: 20250228
  22. Conbloc [Concomitant]
     Indication: Cardiac failure congestive
     Dosage: 1.25MG
     Route: 048
     Dates: start: 20250203, end: 20250228
  23. Alzygen [Concomitant]
     Indication: Prophylaxis against gastrointestinal ulcer
     Dosage: TIME INTERVAL: 0.33333333 DAYS: UNIT DOSE: 1 PACK
     Route: 048
     Dates: start: 20250308, end: 20250310
  24. HEPARIN SODIUM [Concomitant]
     Active Substance: HEPARIN SODIUM
     Indication: Thrombosis prophylaxis
     Dosage: GREENCROSS
     Dates: start: 20250228, end: 20250228

REACTIONS (2)
  - Cardiac failure congestive [Fatal]
  - Sepsis [Not Recovered/Not Resolved]

NARRATIVE: CASE EVENT DATE: 20250221
